FAERS Safety Report 6394965-9 (Version None)
Quarter: 2009Q4

REPORT INFORMATION
  Report Type: 
  Country: None (occurrence: None)
  Receive Date: 20091009
  Receipt Date: 20091003
  Transmission Date: 20100525
  Serious: Yes (Other)
  Sender: FDA-Public Use
  Company Number: BR-PFIZER INC-2009250627

PATIENT

DRUGS (1)
  1. XALATAN [Suspect]

REACTIONS (1)
  - ASTHMATIC CRISIS [None]
